FAERS Safety Report 15288659 (Version 1)
Quarter: 2018Q3

REPORT INFORMATION
  Report Type: Spontaneous
  Country: US (occurrence: US)
  Receive Date: 20180802
  Receipt Date: 20180802
  Transmission Date: 20181010
  Serious: Yes (Hospitalization)
  Sender: FDA-Public Use
  Company Number: None

PATIENT
  Age: 71 Year
  Sex: Male
  Weight: 80 kg

DRUGS (13)
  1. VITAMIN C [Concomitant]
     Active Substance: ASCORBIC ACID
  2. MULTIVITE [Concomitant]
     Active Substance: VITAMINS
  3. FOLIC ACID. [Concomitant]
     Active Substance: FOLIC ACID
  4. ALBUTEROL. [Concomitant]
     Active Substance: ALBUTEROL
  5. MONTELUKAST [Concomitant]
     Active Substance: MONTELUKAST SODIUM
  6. STIOLTO RESPIMAT [Concomitant]
     Active Substance: OLODATEROL HYDROCHLORIDE\TIOTROPIUM BROMIDE MONOHYDRATE
  7. PLETAL [Concomitant]
     Active Substance: CILOSTAZOL
  8. CARBOPLATIN. [Suspect]
     Active Substance: CARBOPLATIN
     Indication: NEOPLASM MALIGNANT
  9. CALCIUM W/D [Concomitant]
  10. LORATADINE. [Concomitant]
     Active Substance: LORATADINE
  11. ASA [Concomitant]
     Active Substance: ASPIRIN
  12. FLONASE [Concomitant]
     Active Substance: FLUTICASONE PROPIONATE
  13. PEMETREXED. [Suspect]
     Active Substance: PEMETREXED
     Indication: NEOPLASM MALIGNANT

REACTIONS (2)
  - Pancytopenia [None]
  - Febrile neutropenia [None]

NARRATIVE: CASE EVENT DATE: 20180612
